FAERS Safety Report 20282050 (Version 1)
Quarter: 2022Q1

REPORT INFORMATION
  Report Type: Spontaneous
  Country: US (occurrence: US)
  Receive Date: 20220103
  Receipt Date: 20220103
  Transmission Date: 20220423
  Serious: No
  Sender: FDA-Public Use
  Company Number: US-BAUSCH-BL-2021-042891

PATIENT
  Age: 43 Year
  Sex: Female

DRUGS (1)
  1. LUMIFY [Suspect]
     Active Substance: BRIMONIDINE TARTRATE
     Indication: Ocular hyperaemia
     Route: 047
     Dates: start: 202112, end: 20211229

REACTIONS (1)
  - Instillation site lacrimation [Not Recovered/Not Resolved]

NARRATIVE: CASE EVENT DATE: 20211201
